FAERS Safety Report 17086879 (Version 1)
Quarter: 2019Q4

REPORT INFORMATION
  Report Type: Spontaneous
  Country: DE (occurrence: DE)
  Receive Date: 20191128
  Receipt Date: 20191128
  Transmission Date: 20200122
  Serious: Yes (Life-Threatening, Other)
  Sender: FDA-Public Use
  Company Number: DE-BRISTOL-MYERS SQUIBB COMPANY-BMS-2019-112895

PATIENT
  Age: 75 Year
  Sex: Male
  Weight: 68.5 kg

DRUGS (5)
  1. FERRO SANOL [Concomitant]
     Active Substance: FERROUS GLYCINE SULFATE
     Indication: HAEMORRHAGE
     Dosage: 80 MILLIGRAM, BID
     Route: 065
  2. ELIQUIS [Suspect]
     Active Substance: APIXABAN
     Indication: CEREBROVASCULAR ACCIDENT PROPHYLAXIS
     Dosage: 2 DOSAGE FORM, BID
     Route: 065
  3. BISOPROLOL [Concomitant]
     Active Substance: BISOPROLOL
     Indication: HYPERTENSION
     Dosage: 2.5 MILLIGRAM, 1 DAY, DAILY DOSE: 2.5 MILLIGRAM EVERY DAYS
     Route: 065
  4. JANUMET [Concomitant]
     Active Substance: METFORMIN HYDROCHLORIDE\SITAGLIPTIN PHOSPHATE
     Indication: DIABETES MELLITUS
     Dosage: 1 DOSAGE FORM, QD
     Route: 065
  5. METFORMIN [Concomitant]
     Active Substance: METFORMIN HYDROCHLORIDE
     Indication: DIABETES MELLITUS
     Dosage: 1000 MILLIGRAM, QD, 1000 MILLIGRAMS EVERY DAY
     Route: 065

REACTIONS (3)
  - Urinary hesitation [Recovered/Resolved]
  - Haemorrhage [Recovered/Resolved]
  - Bladder tamponade [Recovered/Resolved]

NARRATIVE: CASE EVENT DATE: 201904
